FAERS Safety Report 12864484 (Version 1)
Quarter: 2016Q4

REPORT INFORMATION
  Report Type: Spontaneous
  Country: US (occurrence: US)
  Receive Date: 20161018
  Receipt Date: 20161018
  Transmission Date: 20170207
  Serious: No
  Sender: FDA-Public Use
  Company Number: None

PATIENT
  Age: 71 Year
  Sex: Male

DRUGS (24)
  1. ENOXAPARIN [Suspect]
     Active Substance: ENOXAPARIN
     Indication: PULMONARY EMBOLISM
     Route: 058
     Dates: start: 20160818
  2. FLUTICASONE [Concomitant]
     Active Substance: FLUTICASONE\FLUTICASONE PROPIONATE
  3. MAGNESIUM OXIDE. [Concomitant]
     Active Substance: MAGNESIUM OXIDE
  4. RANITIDINE. [Concomitant]
     Active Substance: RANITIDINE
  5. DORZOLAMIDE [Concomitant]
     Active Substance: DORZOLAMIDE
  6. ESCITALOPRAM [Concomitant]
     Active Substance: ESCITALOPRAM OXALATE
  7. PRAVASTATIN. [Concomitant]
     Active Substance: PRAVASTATIN
  8. PREDNISONE. [Concomitant]
     Active Substance: PREDNISONE
  9. MUPIROCIN. [Concomitant]
     Active Substance: MUPIROCIN
  10. NYSTATIN/ZINC/HYDROCORTISONE [Concomitant]
  11. TIMOLOL. [Concomitant]
     Active Substance: TIMOLOL
  12. CALCIUM CARBONATE. [Concomitant]
     Active Substance: CALCIUM CARBONATE
  13. CHOLECALCIFEROL [Concomitant]
     Active Substance: CHOLECALCIFEROL
  14. ITRACONAZOLE. [Concomitant]
     Active Substance: ITRACONAZOLE
  15. TACROLIMUS. [Concomitant]
     Active Substance: TACROLIMUS
  16. AZITHROMYCIN ANHYDROUS. [Concomitant]
     Active Substance: AZITHROMYCIN ANHYDROUS
  17. INSULIN [Concomitant]
     Active Substance: INSULIN NOS
  18. LOPERAMIDE [Concomitant]
     Active Substance: LOPERAMIDE
  19. SULFAMETHOXAZOLE/TRIMETHOPRIM [Concomitant]
     Active Substance: SULFAMETHOXAZOLE\TRIMETHOPRIM
  20. TAMSULOSIN [Concomitant]
     Active Substance: TAMSULOSIN
  21. ALPRAZOLAM. [Concomitant]
     Active Substance: ALPRAZOLAM
  22. FUROSEMIDE. [Concomitant]
     Active Substance: FUROSEMIDE
  23. LORATADINE. [Concomitant]
     Active Substance: LORATADINE
  24. OXYCODONE [Concomitant]
     Active Substance: OXYCODONE

REACTIONS (1)
  - Epistaxis [None]

NARRATIVE: CASE EVENT DATE: 20160818
